FAERS Safety Report 7363310-4 (Version None)
Quarter: 2011Q1

REPORT INFORMATION
  Report Type: 
  Country: None (occurrence: None)
  Receive Date: 20110321
  Receipt Date: 20110308
  Transmission Date: 20110831
  Serious: Yes (Hospitalization, Other)
  Sender: FDA-Public Use
  Company Number: US-EISAI INC-E3810-04511-SPO-US

PATIENT
  Sex: Female
  Weight: 75 kg

DRUGS (6)
  1. ACIPHEX [Suspect]
     Indication: CROHN'S DISEASE
     Route: 048
     Dates: start: 20020101
  2. ACIPHEX [Suspect]
     Indication: DIAPHRAGMATIC HERNIA
  3. ACIPHEX [Suspect]
     Indication: GASTRIC POLYPS
  4. TOPROL-XL [Concomitant]
     Indication: HYPERTENSION
     Dates: start: 20020101
  5. ACIPHEX [Suspect]
     Indication: GASTRITIS
  6. ACIPHEX [Suspect]

REACTIONS (10)
  - BONE DENSITY DECREASED [None]
  - PALPITATIONS [None]
  - JOINT CREPITATION [None]
  - ARTHRALGIA [None]
  - VITAMIN D ABNORMAL [None]
  - PARAESTHESIA [None]
  - ALOPECIA [None]
  - TONGUE DISORDER [None]
  - BENIGN NEOPLASM OF THYROID GLAND [None]
  - GROIN PAIN [None]
